FAERS Safety Report 16020923 (Version 2)
Quarter: 2019Q2

REPORT INFORMATION
  Report Type: Spontaneous
  Country: US (occurrence: US)
  Receive Date: 20190301
  Receipt Date: 20190417
  Transmission Date: 20190711
  Serious: Yes (Other)
  Sender: FDA-Public Use
  Company Number: US-BAYER-2019-042197

PATIENT
  Sex: Female
  Weight: 69.3 kg

DRUGS (1)
  1. SKYLA [Suspect]
     Active Substance: LEVONORGESTREL
     Indication: CONTRACEPTION
     Dosage: 14 MCG/24HR, CONT
     Route: 015
     Dates: start: 20180219, end: 20190211

REACTIONS (3)
  - Drug ineffective [None]
  - Embedded device [Recovered/Resolved]
  - Pregnancy with contraceptive device [None]
